FAERS Safety Report 7640791-X (Version None)
Quarter: 2011Q3

REPORT INFORMATION
  Report Type: 
  Country: None (occurrence: None)
  Receive Date: 20110727
  Receipt Date: 20110727
  Transmission Date: 20111222
  Serious: Yes (Hospitalization)
  Sender: FDA-Public Use
  Company Number: None

PATIENT
  Age: 39 Year
  Sex: Female
  Weight: 63.6 kg

DRUGS (11)
  1. DOXORUBICIN HCL [Suspect]
     Indication: BREAST CANCER
     Dosage: 107 MG Q 0 WEEK IV
     Route: 042
     Dates: start: 20110608
  2. DOXORUBICIN HCL [Suspect]
     Indication: BREAST CANCER
     Dosage: 107 MG Q 0 WEEK IV
     Route: 042
     Dates: start: 20110622
  3. DOXORUBICIN HCL [Suspect]
     Indication: BREAST CANCER
     Dosage: 107 MG Q 0 WEEK IV
     Route: 042
     Dates: start: 20110523
  4. DOXORUBICIN HCL [Suspect]
     Indication: BREAST CANCER
     Dosage: 107 MG Q 0 WEEK IV
     Route: 042
     Dates: start: 20110711
  5. DOXORUBICIN HCL [Suspect]
     Indication: BREAST CANCER
  6. CYTOXAN [Suspect]
     Dosage: 1071 MG Q 0 WEEK IV
     Route: 042
     Dates: start: 20110525
  7. CYTOXAN [Suspect]
     Dosage: 1071 MG Q 0 WEEK IV
     Route: 042
     Dates: start: 20110711
  8. CYTOXAN [Suspect]
     Dosage: 1071 MG Q 0 WEEK IV
     Route: 042
     Dates: start: 20110608
  9. AVASTIN [Suspect]
     Indication: BREAST CANCER
     Dosage: 694 MG Q0 WEEK X3 IV
     Route: 042
     Dates: start: 20110622
  10. AVASTIN [Suspect]
     Indication: BREAST CANCER
     Dosage: 694 MG Q0 WEEK X3 IV
     Route: 042
     Dates: start: 20110525
  11. AVASTIN [Suspect]
     Indication: BREAST CANCER
     Dosage: 694 MG Q0 WEEK X3 IV
     Route: 042
     Dates: start: 20110608

REACTIONS (9)
  - OROPHARYNGEAL PAIN [None]
  - PYREXIA [None]
  - ANAEMIA [None]
  - THROMBOCYTOPENIA [None]
  - PAIN [None]
  - FEBRILE NEUTROPENIA [None]
  - BRADYCARDIA [None]
  - CHILLS [None]
  - PANCYTOPENIA [None]
